FAERS Safety Report 25374630 (Version 1)
Quarter: 2025Q2

REPORT INFORMATION
  Report Type: Spontaneous
  Country: US (occurrence: None)
  Receive Date: 20250528
  Receipt Date: 20250528
  Transmission Date: 20250716
  Serious: Yes (Other)
  Sender: FDA-CTU
  Company Number: None

PATIENT
  Age: 19 Year
  Sex: Female
  Weight: 42.75 kg

DRUGS (2)
  1. REMICADE [Suspect]
     Active Substance: INFLIXIMAB
     Indication: Cyclitis
     Route: 042
     Dates: end: 20250528
  2. REMICADE [Suspect]
     Active Substance: INFLIXIMAB
     Indication: Uveitis

REACTIONS (15)
  - Feeling abnormal [None]
  - Nausea [None]
  - Throat tightness [None]
  - Pharyngeal swelling [None]
  - Headache [None]
  - Chest discomfort [None]
  - Gastrointestinal disorder [None]
  - Feeling hot [None]
  - Cough [None]
  - Tachycardia [None]
  - Dizziness [None]
  - Vision blurred [None]
  - Somnolence [None]
  - Discomfort [None]
  - Tremor [None]

NARRATIVE: CASE EVENT DATE: 20250528
